FAERS Safety Report 17799297 (Version 1)
Quarter: 2020Q2

REPORT INFORMATION
  Report Type: Spontaneous
  Country: IT (occurrence: IT)
  Receive Date: 20200518
  Receipt Date: 20200518
  Transmission Date: 20200714
  Serious: Yes (Other)
  Sender: FDA-Public Use
  Company Number: NVSC2020IT132285

PATIENT
  Age: 65 Year
  Sex: Male

DRUGS (6)
  1. PERINDOPRIL [Concomitant]
     Active Substance: PERINDOPRIL
     Indication: HYPERTENSION
     Dosage: 2 DF, QD (2 MG + 0.25 MG)
     Route: 048
     Dates: start: 2010
  2. CARDIRENE [Concomitant]
     Active Substance: ASPIRIN DL-LYSINE
     Indication: ISCHAEMIC HEART DISEASE PROPHYLAXIS
     Dosage: 2 DF, QW (2 DF WEEKLY)
     Route: 048
     Dates: start: 2010
  3. PANTOPRAZOLE SODIUM. [Suspect]
     Active Substance: PANTOPRAZOLE SODIUM
     Indication: PRODUCT USED FOR UNKNOWN INDICATION
     Dosage: UNK
     Route: 065
  4. INDAPAMID [Concomitant]
     Active Substance: INDAPAMIDE
     Indication: HYPERTENSION
     Dosage: 2 DF
     Route: 065
  5. PANTOPRAZOLE SODIUM. [Suspect]
     Active Substance: PANTOPRAZOLE SODIUM
     Dosage: 20 MG, QD (20 MG DAILY)
     Route: 048
     Dates: start: 201806, end: 20200201
  6. EUTIROX [Concomitant]
     Active Substance: LEVOTHYROXINE SODIUM
     Indication: THYROID DISORDER
     Dosage: 1 DF, QD (1 DF DAILY )
     Route: 048
     Dates: start: 2000

REACTIONS (4)
  - Dizziness [Recovered/Resolved]
  - Hyperhidrosis [Recovered/Resolved]
  - Tachycardia [Recovered/Resolved]
  - Vertigo [Recovered/Resolved]

NARRATIVE: CASE EVENT DATE: 20200201
